FAERS Safety Report 6062873-9 (Version None)
Quarter: 2009Q1

REPORT INFORMATION
  Report Type: 
  Country: None (occurrence: None)
  Receive Date: 20090202
  Receipt Date: 20090202
  Transmission Date: 20090719
  Serious: No
  Sender: FDA-Public Use
  Company Number: None

PATIENT
  Age: 33 Year
  Sex: Female
  Weight: 63.5036 kg

DRUGS (1)
  1. AMBIEN CR [Suspect]
     Indication: SLEEP APNOEA SYNDROME
     Dosage: 1 TABLET AT BEDTIME PO
     Route: 048
     Dates: start: 20080201, end: 20081122

REACTIONS (4)
  - AMNESIA [None]
  - IMPRISONMENT [None]
  - ROAD TRAFFIC ACCIDENT [None]
  - SOMNAMBULISM [None]
